FAERS Safety Report 6914235-7 (Version None)
Quarter: 2010Q3

REPORT INFORMATION
  Report Type: 
  Country: None (occurrence: None)
  Receive Date: 20100809
  Receipt Date: 20100730
  Transmission Date: 20110219
  Serious: Yes (Hospitalization)
  Sender: FDA-Public Use
  Company Number: A0866618A

PATIENT
  Age: 62 Year
  Sex: Female

DRUGS (11)
  1. AVANDIA [Suspect]
     Indication: DIABETES MELLITUS
     Dosage: 8MG PER DAY
     Route: 048
     Dates: start: 19990901, end: 20080301
  2. KEFLEX [Concomitant]
  3. PROLEX DM [Concomitant]
  4. VICODIN [Concomitant]
  5. ALLOPURINOL [Concomitant]
  6. ADVAIR DISKUS 100/50 [Concomitant]
  7. LASIX [Concomitant]
  8. ACCUPRIL [Concomitant]
  9. POTASSIUM CHLORIDE [Concomitant]
  10. PROCARDIA XL [Concomitant]
  11. TESSALON [Concomitant]

REACTIONS (2)
  - CARDIAC FAILURE CONGESTIVE [None]
  - GAIT DISTURBANCE [None]
